FAERS Safety Report 19453877 (Version 2)
Quarter: 2021Q3

REPORT INFORMATION
  Report Type: Spontaneous
  Country: JP (occurrence: JP)
  Receive Date: 20210623
  Receipt Date: 20210826
  Transmission Date: 20211014
  Serious: Yes (Death, Other)
  Sender: FDA-Public Use
  Company Number: JP-BRISTOL-MYERS SQUIBB COMPANY-BMS-2021-059987

PATIENT
  Age: 72 Year
  Sex: Female
  Weight: 43.4 kg

DRUGS (3)
  1. SODIUM RABEPRAZOLE [Concomitant]
     Active Substance: RABEPRAZOLE SODIUM
     Indication: PRODUCT USED FOR UNKNOWN INDICATION
     Dosage: 10 MILLIGRAM, QD
     Route: 048
     Dates: end: 20210616
  2. ELIQUIS [Suspect]
     Active Substance: APIXABAN
     Indication: EMBOLISM VENOUS
     Dosage: 5 MILLIGRAM, BID
     Route: 048
     Dates: start: 20210611, end: 20210616
  3. GLYCYRON 2GO [Concomitant]
     Indication: PRODUCT USED FOR UNKNOWN INDICATION
     Dosage: 2 DOSAGE FORM, TID
     Route: 048
     Dates: end: 20210616

REACTIONS (5)
  - Subarachnoid haemorrhage [Fatal]
  - Headache [Unknown]
  - Incontinence [Unknown]
  - Hypertension [Unknown]
  - Vomiting [Unknown]

NARRATIVE: CASE EVENT DATE: 20210615
